FAERS Safety Report 8897880 (Version 1)
Quarter: 2012Q4

REPORT INFORMATION
  Report Type: 
  Country: BR (occurrence: BR)
  Receive Date: 20121109
  Receipt Date: 20121109
  Transmission Date: 20130627
  Serious: Yes (Death, Other)
  Sender: FDA-Public Use
  Company Number: BR-ELI_LILLY_AND_COMPANY-BR201211001554

PATIENT
  Age: 74 Year
  Sex: Male

DRUGS (1)
  1. EFFIENT [Suspect]
     Indication: ANTIPLATELET THERAPY
     Dosage: 10 mg, UNK
     Route: 048
     Dates: start: 20120913, end: 20121020

REACTIONS (2)
  - Cardiac disorder [Fatal]
  - Surgery [Fatal]
